FAERS Safety Report 10016552 (Version 3)
Quarter: 2015Q3

REPORT INFORMATION
  Report Type: Spontaneous
  Country: US (occurrence: US)
  Receive Date: 20140317
  Receipt Date: 20150817
  Transmission Date: 20151125
  Serious: No
  Sender: FDA-Public Use
  Company Number: US-GILEAD-2014-0096874

PATIENT
  Age: 65 Year
  Sex: Female

DRUGS (5)
  1. LETAIRIS [Suspect]
     Active Substance: AMBRISENTAN
     Indication: PULMONARY HYPERTENSION
     Dosage: 10 MG, QD
     Route: 065
     Dates: start: 20130502
  2. LETAIRIS [Suspect]
     Active Substance: AMBRISENTAN
     Indication: SYSTEMIC SCLEROSIS
  3. REVATIO [Concomitant]
     Active Substance: SILDENAFIL CITRATE
  4. TRACLEER [Concomitant]
     Active Substance: BOSENTAN
  5. TYVASO [Concomitant]
     Active Substance: TREPROSTINIL

REACTIONS (1)
  - Anaemia [Unknown]
